FAERS Safety Report 6612826-4 (Version None)
Quarter: 2010Q1

REPORT INFORMATION
  Report Type: 
  Country: None (occurrence: None)
  Receive Date: 20100303
  Receipt Date: 20100223
  Transmission Date: 20100710
  Serious: Yes (Other)
  Sender: FDA-Public Use
  Company Number: US-BAYER-201012157BCC

PATIENT
  Age: 30 Year
  Sex: Male
  Weight: 98 kg

DRUGS (1)
  1. ALKA-SELTZER PLUS COLD SPARKLING ORIGINAL EFFERVESCENT [Suspect]
     Indication: SNEEZING
     Dosage: TOTAL DAILY DOSE: 2 DF
     Route: 048
     Dates: start: 20100223

REACTIONS (7)
  - CHOKING SENSATION [None]
  - DYSPNOEA [None]
  - EYE PAIN [None]
  - HYPERSENSITIVITY [None]
  - PRURITUS [None]
  - SNEEZING [None]
  - UPPER AIRWAY OBSTRUCTION [None]
